FAERS Safety Report 7867100-5 (Version None)
Quarter: 2011Q4

REPORT INFORMATION
  Report Type: 
  Country: None (occurrence: None)
  Receive Date: 20111028
  Receipt Date: 20111021
  Transmission Date: 20120403
  Serious: Yes (Other)
  Sender: FDA-Public Use
  Company Number: US-JNJFOC-20110813119

PATIENT
  Sex: Female

DRUGS (2)
  1. MYLANTA MAXIMUM STRENGTH CHERRY [Suspect]
     Indication: DYSPEPSIA
     Route: 048
  2. MYLANTA MAXIMUM STRENGTH CHERRY [Suspect]
     Indication: ULCER
     Route: 048

REACTIONS (3)
  - NEUROPATHY PERIPHERAL [None]
  - OFF LABEL USE [None]
  - PRODUCT QUALITY ISSUE [None]
